FAERS Safety Report 14514780 (Version 2)
Quarter: 2018Q2

REPORT INFORMATION
  Report Type: Spontaneous
  Country: GB (occurrence: GB)
  Receive Date: 20180209
  Receipt Date: 20180403
  Transmission Date: 20180711
  Serious: Yes (Other)
  Sender: FDA-Public Use
  Company Number: GB-ABBOTT MEDICAL OPTICS-2041724

PATIENT
  Age: 29 Year
  Sex: Male

DRUGS (1)
  1. BLINK TEARS [Suspect]
     Active Substance: POLYETHYLENE GLYCOL 400
     Indication: DRY EYE
     Route: 047

REACTIONS (5)
  - Hypersensitivity [Recovered/Resolved]
  - Conjunctival oedema [Recovered/Resolved]
  - Visual impairment [Recovered/Resolved]
  - Eye pain [Recovered/Resolved]
  - Hyperaemia [Recovered/Resolved]

NARRATIVE: CASE EVENT DATE: 20171019
